FAERS Safety Report 9947575 (Version 1)
Quarter: 2014Q1

REPORT INFORMATION
  Report Type: Report from Study
  Country: US (occurrence: US)
  Receive Date: 20140303
  Receipt Date: 20140303
  Transmission Date: 20141002
  Serious: No
  Sender: FDA-Public Use
  Company Number: US-ABBVIE-13P-163-1062136-00

PATIENT
  Sex: Female
  Weight: 86.26 kg

DRUGS (11)
  1. HUMIRA [Suspect]
     Indication: RHEUMATOID ARTHRITIS
     Dates: start: 20120901, end: 201301
  2. FLAX SEED OIL [Concomitant]
     Indication: NUTRITIONAL SUPPLEMENTATION
  3. FOLIC ACID [Concomitant]
     Indication: VITAMIN SUPPLEMENTATION
  4. LEFLUNOMIDE [Concomitant]
     Indication: RHEUMATOID ARTHRITIS
  5. LIPITOR [Concomitant]
     Indication: BLOOD CHOLESTEROL INCREASED
  6. LUTEIN BLEND [Concomitant]
     Indication: NUTRITIONAL SUPPLEMENTATION
  7. PLAQUENIL [Concomitant]
     Indication: RHEUMATOID ARTHRITIS
  8. PREDNISONE [Concomitant]
     Indication: RHEUMATOID ARTHRITIS
  9. TRIAM/HCTZ [Concomitant]
     Indication: HYPERTENSION
  10. VITAMIN D [Concomitant]
     Indication: VITAMIN SUPPLEMENTATION
  11. ZOLPIDEM [Concomitant]
     Indication: INSOMNIA

REACTIONS (1)
  - Drug ineffective [Not Recovered/Not Resolved]
